FAERS Safety Report 6313368-6 (Version None)
Quarter: 2009Q3

REPORT INFORMATION
  Report Type: 
  Country: None (occurrence: None)
  Receive Date: 20090818
  Receipt Date: 20090813
  Transmission Date: 20100115
  Serious: Yes (Hospitalization, Other)
  Sender: FDA-Public Use
  Company Number: US-ROXANE LABORATORIES, INC.-2009-RO-00827RO

PATIENT
  Age: 52 Year
  Sex: Female
  Weight: 62 kg

DRUGS (16)
  1. HYDROMORPHONE HCL [Suspect]
  2. AMLODIPINE [Suspect]
     Indication: HYPERTENSION
     Dosage: 5 MG
  3. MIDAZOLAM HCL [Suspect]
     Indication: ANAESTHETIC PREMEDICATION
     Route: 042
  4. METOPROLOL TARTRATE [Suspect]
     Indication: HYPERTENSION
     Dosage: 100 MG
  5. ATORVASTATIN [Suspect]
     Indication: HYPERCHOLESTEROLAEMIA
     Dosage: 20 MG
  6. FENTANYL [Suspect]
     Indication: INDUCTION OF ANAESTHESIA
     Route: 042
  7. PROPOFOL [Suspect]
     Indication: INDUCTION OF ANAESTHESIA
     Route: 042
  8. VECURONIUM BROMIDE [Suspect]
     Indication: ENDOTRACHEAL INTUBATION
  9. DESFLURANE [Suspect]
     Indication: MAINTENANCE OF ANAESTHESIA
  10. OXYGEN [Suspect]
     Indication: MAINTENANCE OF ANAESTHESIA
  11. EPHEDRINE [Suspect]
     Indication: HYPOTENSION
  12. PHENYLEPHRINE [Suspect]
     Indication: HYPOTENSION
  13. ESMOLOL HCL [Suspect]
     Indication: TACHYCARDIA
  14. LABETALOL HCL [Suspect]
     Indication: HYPERTENSION
  15. NEOSTIGMINE [Suspect]
     Indication: ANAESTHESIA REVERSAL
  16. GLYCOPYRROLATE [Suspect]
     Indication: ANAESTHESIA REVERSAL

REACTIONS (4)
  - DISEASE PROGRESSION [None]
  - HYPERTENSION [None]
  - HYPOTENSION [None]
  - TACHYCARDIA [None]
